FAERS Safety Report 19493445 (Version 1)
Quarter: 2021Q3

REPORT INFORMATION
  Report Type: Spontaneous
  Country: JP (occurrence: JP)
  Receive Date: 20210705
  Receipt Date: 20210705
  Transmission Date: 20211014
  Serious: Yes (Other)
  Sender: FDA-Public Use
  Company Number: JP-ORGANON-O2107JPN000271

PATIENT
  Sex: Female

DRUGS (4)
  1. AMOXICILLIN HYDRATE [Suspect]
     Active Substance: AMOXICILLIN
     Dosage: UNK
  2. MONTELUKAST SODIUM. [Suspect]
     Active Substance: MONTELUKAST SODIUM
     Dosage: UNK
     Dates: start: 201903, end: 201903
  3. L?CARBOCISTEINE [Suspect]
     Active Substance: CARBOCYSTEINE
     Dosage: UNK
  4. DELLEGRA [Suspect]
     Active Substance: FEXOFENADINE HYDROCHLORIDE\PSEUDOEPHEDRINE HYDROCHLORIDE
     Dosage: UNK

REACTIONS (1)
  - Drug eruption [Unknown]
